FAERS Safety Report 5285097-1 (Version None)
Quarter: 2007Q2

REPORT INFORMATION
  Report Type: 
  Country: None (occurrence: None)
  Receive Date: 20070403
  Receipt Date: 20070323
  Transmission Date: 20071010
  Serious: Yes (Other)
  Sender: FDA-Public Use
  Company Number: PHNU2002DE02846

PATIENT
  Sex: Female

DRUGS (10)
  1. BRISERIN-N [Suspect]
     Indication: HYPERTENSION
     Dosage: 1 DF, QD
     Route: 048
     Dates: start: 19921106, end: 20030729
  2. BRISERIN-N [Suspect]
     Dosage: 2 DF, QD
     Route: 048
  3. BRISERIN-N [Suspect]
     Dosage: 1 DF, QD
     Route: 048
  4. BRISERIN-N [Suspect]
     Dosage: UNK, UNK
     Route: 048
     Dates: start: 20030901
  5. BRISERIN-N MITE [Suspect]
     Indication: HYPERTENSION
     Route: 048
     Dates: start: 19920101, end: 20030729
  6. BRISERIN-N MITE [Suspect]
     Dosage: .5 DF, PRN
     Route: 048
     Dates: start: 20000101, end: 20030729
  7. BRISERIN-N MITE [Suspect]
     Dosage: 1-3 DF/D
     Route: 048
  8. ZENTRAMIN N TABLET [Concomitant]
     Indication: MUSCLE SPASMS
     Dosage: UNK, PRN
     Route: 048
  9. SEDARISTON [Concomitant]
     Indication: DYSTONIA
     Dosage: UNK, PRN
     Route: 065
     Dates: start: 19820101
  10. IBEROGAST [Concomitant]
     Indication: GASTRITIS
     Dosage: 10DRP/DAY
     Route: 048
     Dates: start: 19990101

REACTIONS (14)
  - APATHY [None]
  - BLOOD PARATHYROID HORMONE INCREASED [None]
  - BLOOD PRESSURE FLUCTUATION [None]
  - BLOOD PRESSURE INADEQUATELY CONTROLLED [None]
  - BLOOD PRESSURE INCREASED [None]
  - DEPRESSED MOOD [None]
  - DYSPNOEA [None]
  - HYPERAESTHESIA [None]
  - HYPERSENSITIVITY [None]
  - HYPOAESTHESIA [None]
  - MALAISE [None]
  - NASAL CONGESTION [None]
  - POLYNEUROPATHY [None]
  - SKIN BURNING SENSATION [None]
